FAERS Safety Report 9744669 (Version 1)
Quarter: 2013Q4

REPORT INFORMATION
  Report Type: Spontaneous
  Country: US (occurrence: US)
  Receive Date: 20131210
  Receipt Date: 20131210
  Transmission Date: 20140711
  Serious: Yes (Disabling, Other)
  Sender: FDA-Public Use
  Company Number: US-ELI_LILLY_AND_COMPANY-US201311009115

PATIENT
  Sex: Male

DRUGS (4)
  1. INSULIN HUMAN [Suspect]
     Indication: TYPE 1 DIABETES MELLITUS
     Dosage: 16 U, BID
     Route: 065
  2. INSULIN HUMAN [Suspect]
     Dosage: 6 U, EACH EVENING
     Route: 065
  3. INSULIN HUMAN [Suspect]
     Dosage: UNK, PRN
     Route: 065
  4. INSULIN HUMAN [Suspect]
     Indication: TYPE 1 DIABETES MELLITUS
     Dosage: 10 U, BID
     Route: 065

REACTIONS (2)
  - Blindness [Not Recovered/Not Resolved]
  - Optic nerve disorder [Not Recovered/Not Resolved]
